FAERS Safety Report 9326141 (Version 2)
Quarter: 2013Q2

REPORT INFORMATION
  Report Type: Spontaneous
  Country: IE (occurrence: IE)
  Receive Date: 20130604
  Receipt Date: 20130610
  Transmission Date: 20140414
  Serious: Yes (Hospitalization)
  Sender: FDA-Public Use
  Company Number: IE-BAXTER-2013BAX020066

PATIENT
  Age: 32 Year
  Sex: Female

DRUGS (5)
  1. TRIOMEL [Suspect]
     Indication: NUTRITIONAL SUPPLEMENTATION
     Route: 042
     Dates: start: 20130507, end: 20130522
  2. CERNEVIT [Suspect]
     Indication: NUTRITIONAL SUPPLEMENTATION
     Route: 042
     Dates: start: 20130507, end: 20130522
  3. WATER FOR INJECTIONS PH.EUR [Suspect]
     Indication: NUTRITIONAL SUPPLEMENTATION
     Route: 042
     Dates: start: 20130507, end: 20130522
  4. ADDITRACE [Suspect]
     Indication: NUTRITIONAL SUPPLEMENTATION
     Route: 042
     Dates: start: 20130507, end: 20130522
  5. ASCORBIC ACID [Suspect]
     Indication: NUTRITIONAL SUPPLEMENTATION
     Dosage: 100/MG/ML
     Route: 042
     Dates: start: 20130507, end: 20130522

REACTIONS (1)
  - Thrombosis [Not Recovered/Not Resolved]
